FAERS Safety Report 8370587-5 (Version None)
Quarter: 2012Q2

REPORT INFORMATION
  Report Type: 
  Country: None (occurrence: None)
  Receive Date: 20120518
  Receipt Date: 20120509
  Transmission Date: 20120825
  Serious: Yes (Other)
  Sender: FDA-Public Use
  Company Number: ES-ASTRAZENECA-2012SE29919

PATIENT
  Age: 85 Year
  Sex: Male

DRUGS (6)
  1. ENOXAPARIN SODIUM [Suspect]
     Indication: THROMBOSIS PROPHYLAXIS
     Dosage: 40 MG MG (4000 IU), DAILY, INJECTABLE SOLUTION IN PRELOADED SYRINGE, 10 S
     Route: 058
     Dates: start: 20110104, end: 20110207
  2. ENANTYUM [Suspect]
     Route: 048
     Dates: start: 20110201, end: 20110207
  3. LORAZEPAM [Suspect]
     Route: 048
     Dates: start: 20110128, end: 20110304
  4. PANTOPRAZOLE [Suspect]
     Route: 042
     Dates: start: 20110128, end: 20110204
  5. MEROPENEM [Suspect]
     Route: 042
     Dates: start: 20110201, end: 20110222
  6. FUROSEMIDE [Suspect]
     Route: 042
     Dates: start: 20110203, end: 20110209

REACTIONS (1)
  - THROMBOCYTOPENIA [None]
